FAERS Safety Report 10841933 (Version 1)
Quarter: 2015Q1

REPORT INFORMATION
  Report Type: Report from Study
  Country: US (occurrence: US)
  Receive Date: 20150220
  Receipt Date: 20150220
  Transmission Date: 20150721
  Serious: No
  Sender: FDA-Public Use
  Company Number: US-ABBVIE-14P-163-1265206-00

PATIENT
  Age: 36 Year
  Sex: Male
  Weight: 123.03 kg

DRUGS (3)
  1. HUMIRA [Suspect]
     Active Substance: ADALIMUMAB
     Indication: CROHN^S DISEASE
     Dates: start: 20140623, end: 20140623
  2. HUMIRA [Suspect]
     Active Substance: ADALIMUMAB
     Dates: start: 20140707, end: 20140707
  3. HUMIRA [Suspect]
     Active Substance: ADALIMUMAB
     Dates: start: 20140721

REACTIONS (1)
  - Injection site pain [Not Recovered/Not Resolved]

NARRATIVE: CASE EVENT DATE: 20140623
